FAERS Safety Report 13943663 (Version 2)
Quarter: 2017Q3

REPORT INFORMATION
  Report Type: Spontaneous
  Country: US (occurrence: US)
  Receive Date: 20170907
  Receipt Date: 20170908
  Transmission Date: 20171128
  Serious: No
  Sender: FDA-Public Use
  Company Number: US-009507513-1708USA006256

PATIENT
  Age: 72 Year
  Sex: Male

DRUGS (3)
  1. LIDOCAINE. [Concomitant]
     Active Substance: LIDOCAINE
     Indication: LUMBAR RADICULOPATHY
     Dosage: 1.5 ML, UNK
  2. DEXAMETHASONE. [Suspect]
     Active Substance: DEXAMETHASONE
     Indication: LUMBAR RADICULOPATHY
     Dosage: 0.8 ML (STRENGTH 10 MG/ML), INJECTED INTO THE BILATERAL L4 L5 NEURAL FORAMEN AND EPIDURAL SPACE
  3. OMNIPAQUE [Concomitant]
     Active Substance: IOHEXOL
     Dosage: 2 ML, UNK

REACTIONS (1)
  - Hiccups [Recovered/Resolved]
